FAERS Safety Report 12894683 (Version 1)
Quarter: 2016Q4

REPORT INFORMATION
  Report Type: Spontaneous
  Country: US (occurrence: US)
  Receive Date: 20161028
  Receipt Date: 20161028
  Transmission Date: 20170207
  Serious: Yes (Hospitalization, Other)
  Sender: FDA-Public Use
  Company Number: US-STANDARD HOMEOPATHIC COMPANY-1059030

PATIENT
  Age: 4 Month
  Sex: Female

DRUGS (1)
  1. BABY TEETHING (HYLAND HOMEOPATHIC) [Suspect]
     Active Substance: HOMEOPATHICS
     Indication: TEETHING
     Route: 048
     Dates: start: 2016, end: 2016

REACTIONS (4)
  - Respiratory arrest [None]
  - Seizure like phenomena [None]
  - Unresponsive to stimuli [None]
  - Fall [None]

NARRATIVE: CASE EVENT DATE: 20160510
